FAERS Safety Report 7610273-X (Version None)
Quarter: 2011Q3

REPORT INFORMATION
  Report Type: 
  Country: None (occurrence: None)
  Receive Date: 20110706
  Receipt Date: 20110623
  Transmission Date: 20111222
  Serious: Yes (Other)
  Sender: FDA-Public Use
  Company Number: 1000021481

PATIENT
  Age: 80 Year
  Sex: Female
  Weight: 50 kg

DRUGS (13)
  1. FUROSEMIDE (FUROSEMIDE) (40 MILLIGRAM, TABLETS) (FUROSEMIDE) [Concomitant]
  2. OMEPRAZOLE (OMEPRAZOLE) (20 MILLIGRAM) (OMEPRAZOLE) [Concomitant]
  3. ACETYLCYSTEINE (ACETYLCYSTEINE) (ACETYLCYSTEINE) [Concomitant]
  4. ROFLUMILAST (ROFLUMILAST) (500 MICROGRAM, TABLETS) [Suspect]
     Indication: CONDITION AGGRAVATED
     Dosage: 500 MCG (500 MCG,1 IN 1 D),ORAL
     Route: 048
     Dates: start: 20110324, end: 20110514
  5. ROFLUMILAST (ROFLUMILAST) (500 MICROGRAM, TABLETS) [Suspect]
     Indication: CHRONIC OBSTRUCTIVE PULMONARY DISEASE
     Dosage: 500 MCG (500 MCG,1 IN 1 D),ORAL
     Route: 048
     Dates: start: 20110324, end: 20110514
  6. COMBIVENT (IPRATROPIUM, SALBUTAMOL) (IPRATROPIUM, SALBUTAMOL) [Concomitant]
  7. PULMICORT (BUDESONIDE) (BUDESONIDE) [Concomitant]
  8. THEOLAIR (THEOPHYLLINE) (175 MILLIGRAM, TABLETS) (THEOPHYLLINE) [Concomitant]
  9. LISINOPRIL [Concomitant]
  10. ACTONEL (RISEDRONATE SODIUM) (35 MILLIGRAM, TABLETS) (RISEDRONATE SODI [Concomitant]
  11. BISOPROLOL FUMARATE [Concomitant]
  12. FENTANYL [Concomitant]
  13. AZITHROMYCIN [Concomitant]

REACTIONS (3)
  - WEIGHT DECREASED [None]
  - CHRONIC OBSTRUCTIVE PULMONARY DISEASE [None]
  - CONDITION AGGRAVATED [None]
